FAERS Safety Report 26206117 (Version 1)
Quarter: 2025Q4

REPORT INFORMATION
  Report Type: Spontaneous
  Country: EU (occurrence: EU)
  Receive Date: 20251229
  Receipt Date: 20251229
  Transmission Date: 20260118
  Serious: Yes (Other)
  Sender: AUROBINDO
  Company Number: EU-EMB-M202408351-1

PATIENT
  Age: 37 Year
  Sex: Female

DRUGS (2)
  1. CITALOPRAM [Suspect]
     Active Substance: CITALOPRAM
     Indication: Anxiety disorder
     Dosage: 20 MILLIGRAM, ONCE A DAY
     Route: 061
     Dates: start: 202401, end: 202409
  2. FILGOTINIB [Suspect]
     Active Substance: FILGOTINIB
     Indication: Colitis ulcerative
     Dosage: 200 MILLIGRAM, ONCE A DAY
     Route: 061
     Dates: start: 202401, end: 202409

REACTIONS (2)
  - Gestational diabetes [Recovered/Resolved]
  - Exposure during pregnancy [Unknown]
